FAERS Safety Report 21254102 (Version 1)
Quarter: 2022Q3

REPORT INFORMATION
  Report Type: Spontaneous
  Country: US (occurrence: None)
  Receive Date: 20220824
  Receipt Date: 20220824
  Transmission Date: 20221027
  Serious: Yes (Hospitalization)
  Sender: FDA-Public Use
  Company Number: None

PATIENT
  Sex: Female

DRUGS (1)
  1. TADALAFIL [Suspect]
     Active Substance: TADALAFIL
     Indication: Pulmonary arterial hypertension
     Dosage: 40 MG ONCE A DAY ORAL
     Route: 048
     Dates: start: 202204

REACTIONS (3)
  - Transplant [None]
  - Therapeutic product effect prolonged [None]
  - Anaesthesia [None]
